FAERS Safety Report 21959818 (Version 2)
Quarter: 2023Q1

REPORT INFORMATION
  Report Type: Report from Study
  Country: AR (occurrence: AR)
  Receive Date: 20230206
  Receipt Date: 20230215
  Transmission Date: 20230418
  Serious: Yes (Death, Hospitalization, Other)
  Sender: FDA-Public Use
  Company Number: AR-002147023-NVSC2023AR022744

PATIENT

DRUGS (4)
  1. RUXOLITINIB [Suspect]
     Active Substance: RUXOLITINIB
     Indication: Myelofibrosis
     Dosage: 40 MG, QD (ONCE PER DAY)
     Route: 048
     Dates: start: 20171026
  2. RUXOLITINIB [Suspect]
     Active Substance: RUXOLITINIB
     Dosage: UNK
     Route: 065
     Dates: end: 202206
  3. HYDROXYUREA [Concomitant]
     Active Substance: HYDROXYUREA
     Indication: Product used for unknown indication
     Dosage: 3 DOSAGE FORM, QD, (3 OF 500MG)
     Route: 065
  4. LOSARTAN [Concomitant]
     Active Substance: LOSARTAN
     Indication: Product used for unknown indication
     Dosage: 1 DOSAGE FORM, QD, (1 OF 50MG)
     Route: 065

REACTIONS (15)
  - Cardio-respiratory arrest [Fatal]
  - Cardiac failure [Unknown]
  - Peripheral swelling [Unknown]
  - Fluid retention [Unknown]
  - Blood test abnormal [Unknown]
  - Hepatomegaly [Unknown]
  - Liver disorder [Unknown]
  - Pain [Unknown]
  - Therapy non-responder [Unknown]
  - Inappropriate schedule of product administration [Unknown]
  - Pneumonia [Unknown]
  - Myelofibrosis [Fatal]
  - Malignant neoplasm progression [Fatal]
  - Pulmonary embolism [Unknown]
  - Respiratory distress [Unknown]

NARRATIVE: CASE EVENT DATE: 20171026
